FAERS Safety Report 5079386-3 (Version None)
Quarter: 2006Q3

REPORT INFORMATION
  Report Type: 
  Country: None (occurrence: None)
  Receive Date: 20060808
  Receipt Date: 20060801
  Transmission Date: 20061208
  Serious: Yes (Hospitalization)
  Sender: FDA-Public Use
  Company Number: 2006RR-03133

PATIENT
  Age: 77 Year
  Sex: Male

DRUGS (12)
  1. FLUOXETINE [Suspect]
     Indication: DEPRESSION
     Dosage: 20 MG, QD, ORAL
     Route: 048
  2. ASPIRIN [Concomitant]
  3. MEBEVERINE [Concomitant]
  4. MOVICOL [Concomitant]
  5. MOVICOL [Concomitant]
  6. MOVICOL [Concomitant]
  7. MOVICOL [Concomitant]
  8. OMEPRAZOLE (OMEPRAZOLE) TABLET [Concomitant]
  9. ACETAMINOPHEN [Concomitant]
  10. QVAR 40 [Concomitant]
  11. RAMIPRIL [Concomitant]
  12. SIMVASTATIN FILM COATED TABLET 20MG (SIMVASTATIN) [Concomitant]

REACTIONS (2)
  - BLOOD SODIUM DECREASED [None]
  - CONVULSION [None]
